FAERS Safety Report 7219483-7 (Version None)
Quarter: 2011Q1

REPORT INFORMATION
  Report Type: 
  Country: None (occurrence: None)
  Receive Date: 20110111
  Receipt Date: 20101129
  Transmission Date: 20110831
  Serious: No
  Sender: FDA-Public Use
  Company Number: US-BAXTER-2010BH003615

PATIENT
  Age: 32 Year
  Sex: Male
  Weight: 132 kg

DRUGS (12)
  1. HEPARIN SODIUM INJECTION [Suspect]
     Route: 040
     Dates: start: 20071115, end: 20080101
  2. HEPARIN SODIUM INJECTION [Suspect]
     Route: 042
     Dates: start: 20071115, end: 20080101
  3. HEPARIN SODIUM INJECTION [Suspect]
     Route: 040
     Dates: start: 20080317, end: 20080317
  4. HEPARIN SODIUM INJECTION [Suspect]
     Route: 040
     Dates: start: 20071108, end: 20071115
  5. HEPARIN SODIUM INJECTION [Suspect]
     Route: 042
     Dates: start: 20071108, end: 20071115
  6. COREG [Concomitant]
     Indication: PRODUCT USED FOR UNKNOWN INDICATION
     Route: 065
  7. NORVASC [Concomitant]
     Indication: PRODUCT USED FOR UNKNOWN INDICATION
     Route: 065
  8. HEPARIN SODIUM INJECTION [Suspect]
     Route: 065
     Dates: start: 20080307, end: 20080307
  9. HEPARIN SODIUM INJECTION [Suspect]
     Indication: HAEMODIALYSIS
     Route: 040
     Dates: start: 20080116, end: 20080116
  10. HEPARIN SODIUM INJECTION [Suspect]
     Route: 042
     Dates: start: 20080116, end: 20080116
  11. HEPARIN SODIUM INJECTION [Suspect]
     Route: 040
     Dates: start: 20080309, end: 20080309
  12. HEPARIN SODIUM INJECTION [Suspect]
     Route: 042
     Dates: start: 20080309, end: 20080309

REACTIONS (11)
  - RASH [None]
  - DIZZINESS [None]
  - NEUROPATHY PERIPHERAL [None]
  - ERYTHEMA [None]
  - HYPERHIDROSIS [None]
  - HEADACHE [None]
  - DYSPNOEA [None]
  - ASTHENIA [None]
  - HYPOTENSION [None]
  - BLOOD PRESSURE DECREASED [None]
  - CHEST DISCOMFORT [None]
